FAERS Safety Report 6019197-5 (Version None)
Quarter: 2008Q4

REPORT INFORMATION
  Report Type: 
  Country: None (occurrence: None)
  Receive Date: 20081224
  Receipt Date: 20081212
  Transmission Date: 20090506
  Serious: Yes (Life-Threatening, Hospitalization, Other)
  Sender: FDA-Public Use
  Company Number: US-PFIZER INC-2008152725

PATIENT
  Sex: Male
  Weight: 104.31 kg

DRUGS (1)
  1. ZOLOFT [Suspect]
     Dosage: 100 MG, UNK

REACTIONS (7)
  - DYSPHORIA [None]
  - EUPHORIC MOOD [None]
  - HALLUCINATION [None]
  - OBSESSIVE-COMPULSIVE DISORDER [None]
  - OEDEMA [None]
  - SCHIZOPHRENIA [None]
  - SUICIDE ATTEMPT [None]
